FAERS Safety Report 8924374 (Version 1)
Quarter: 2012Q4

REPORT INFORMATION
  Report Type: 
  Country: DE (occurrence: DE)
  Receive Date: 20121126
  Receipt Date: 20121126
  Transmission Date: 20130627
  Serious: Yes (Hospitalization)
  Sender: FDA-Public Use
  Company Number: DE-GLAXOSMITHKLINE-D0077924A

PATIENT
  Age: 19 None
  Sex: Female
  Weight: 60 kg

DRUGS (2)
  1. LAMICTAL [Suspect]
     Dosage: 7500MG per day
     Route: 048
     Dates: start: 20121105
  2. IBUPROFEN [Suspect]
     Dosage: 12TAB Unknown
     Route: 048
     Dates: start: 20121105

REACTIONS (6)
  - Suicide attempt [Unknown]
  - Vomiting [Recovered/Resolved]
  - Somnolence [Recovered/Resolved]
  - Gastrointestinal sounds abnormal [Recovered/Resolved]
  - Tachycardia [Recovered/Resolved]
  - Intentional overdose [Unknown]
